FAERS Safety Report 6670786-4 (Version None)
Quarter: 2010Q2

REPORT INFORMATION
  Report Type: 
  Country: None (occurrence: None)
  Receive Date: 20100407
  Receipt Date: 20100407
  Transmission Date: 20101027
  Serious: Yes (Hospitalization)
  Sender: FDA-Public Use
  Company Number: PHHO2007PL08963

PATIENT
  Sex: Female
  Weight: 66 kg

DRUGS (5)
  1. ACLASTA/ZOLEDRONATE T29581+A+SOLINJ [Suspect]
     Indication: OSTEOPOROSIS POSTMENOPAUSAL
     Dosage: 5 MG ONCE A YEAR
     Route: 042
     Dates: start: 20051110
  2. CALCIUM [Concomitant]
     Indication: OSTEOPOROSIS POSTMENOPAUSAL
  3. VITAMIN D [Concomitant]
     Indication: OSTEOPOROSIS POSTMENOPAUSAL
  4. PROPRANOLOL [Concomitant]
     Indication: MYOCARDIAL ISCHAEMIA
  5. VENLAFAXINE HCL [Concomitant]
     Indication: DEPRESSION

REACTIONS (4)
  - ENDOMETRIAL ATROPHY [None]
  - UTERINE DILATION AND CURETTAGE [None]
  - UTERINE POLYP [None]
  - VAGINAL HAEMORRHAGE [None]
